FAERS Safety Report 10429819 (Version 2)
Quarter: 2014Q3

REPORT INFORMATION
  Report Type: Report from Study
  Country: DE (occurrence: DE)
  Receive Date: 20140904
  Receipt Date: 20140904
  Transmission Date: 20150326
  Serious: Yes (Death, Hospitalization)
  Sender: FDA-Public Use
  Company Number: DE-ROCHE-736542

PATIENT
  Age: 50 Year
  Sex: Male
  Weight: 90 kg

DRUGS (3)
  1. BENDAMUSTINE [Suspect]
     Active Substance: BENDAMUSTINE
     Indication: NON-HODGKIN^S LYMPHOMA
     Dosage: DATE OF LAST DOSE PRIOR TO SAE 15 OCT 2010
     Route: 042
     Dates: start: 20101014
  2. RITUXIMAB [Suspect]
     Active Substance: RITUXIMAB
     Dosage: RESTARTED
     Route: 042
  3. RITUXIMAB [Suspect]
     Active Substance: RITUXIMAB
     Indication: NON-HODGKIN^S LYMPHOMA
     Route: 042
     Dates: start: 20101013, end: 20101013

REACTIONS (4)
  - Hypotonia [Fatal]
  - Acute respiratory distress syndrome [Fatal]
  - Capillary leak syndrome [Fatal]
  - Renal failure acute [Fatal]

NARRATIVE: CASE EVENT DATE: 20101022
